FAERS Safety Report 26214597 (Version 1)
Quarter: 2025Q4

REPORT INFORMATION
  Report Type: Spontaneous
  Country: CN (occurrence: CN)
  Receive Date: 20251230
  Receipt Date: 20251230
  Transmission Date: 20260118
  Serious: Yes (Hospitalization, Other)
  Sender: SANOFI AVENTIS
  Company Number: CN-DialogSolutions-SAAVPROD-PI858740-C1

PATIENT
  Age: 26 Year
  Sex: Male

DRUGS (2)
  1. INSULIN GLARGINE [Suspect]
     Active Substance: INSULIN GLARGINE
     Indication: Type 1 diabetes mellitus
     Dosage: 22 IU, HS (AT BEDTIME )
  2. INSULIN LISPRO [Suspect]
     Active Substance: INSULIN LISPRO
     Indication: Type 1 diabetes mellitus
     Dosage: 6 IU BEFORE EACH MEAL

REACTIONS (8)
  - Chronic inflammatory demyelinating polyradiculoneuropathy [Recovered/Resolved]
  - Diabetic neuropathy [Recovered/Resolved]
  - Perineal pain [Recovered/Resolved]
  - Muscular weakness [Recovered/Resolved]
  - Pain [Recovered/Resolved]
  - Myalgia [Recovered/Resolved]
  - Hyperaesthesia [Recovered/Resolved]
  - Hypotonia [Recovered/Resolved]
